FAERS Safety Report 5878180-0 (Version None)
Quarter: 2008Q3

REPORT INFORMATION
  Report Type: 
  Country: None (occurrence: None)
  Receive Date: 20080911
  Receipt Date: 20080902
  Transmission Date: 20090109
  Serious: Yes (Other)
  Sender: FDA-Public Use
  Company Number: PHHY2008AR20324

PATIENT
  Sex: Female

DRUGS (1)
  1. EXELON [Suspect]
     Indication: DEMENTIA ALZHEIMER'S TYPE
     Dosage: 6 MG/ DAY
     Dates: start: 20000101

REACTIONS (5)
  - ASTHENIA [None]
  - DEPRESSION [None]
  - FEAR [None]
  - INSOMNIA [None]
  - MEMORY IMPAIRMENT [None]
